APPROVED DRUG PRODUCT: FENTANYL-37
Active Ingredient: FENTANYL
Strength: 37.5MCG/HR
Dosage Form/Route: FILM, EXTENDED RELEASE;TRANSDERMAL
Application: A077449 | Product #006 | TE Code: AB
Applicant: DIFGEN PHARMACEUTICALS LLC
Approved: Dec 6, 2017 | RLD: No | RS: No | Type: RX